FAERS Safety Report 5857173-3 (Version None)
Quarter: 2008Q3

REPORT INFORMATION
  Report Type: 
  Country: None (occurrence: None)
  Receive Date: 20080825
  Receipt Date: 20080820
  Transmission Date: 20090109
  Serious: Yes (Life-Threatening, Disabling)
  Sender: FDA-Public Use
  Company Number: PHHY2008PK18907

PATIENT

DRUGS (3)
  1. ACLASTA [Suspect]
     Indication: OSTEOPOROSIS
     Route: 042
  2. GLUCOPHAGE [Concomitant]
  3. AMARYL [Concomitant]

REACTIONS (2)
  - PYREXIA [None]
  - VISUAL ACUITY REDUCED [None]
